FAERS Safety Report 23674626 (Version 2)
Quarter: 2024Q2

REPORT INFORMATION
  Report Type: Spontaneous
  Country: US (occurrence: US)
  Receive Date: 20240326
  Receipt Date: 20240429
  Transmission Date: 20240716
  Serious: Yes (Hospitalization, Other)
  Sender: FDA-Public Use
  Company Number: US-SUNOVION-2024SUN000216

PATIENT

DRUGS (3)
  1. APTIOM [Suspect]
     Active Substance: ESLICARBAZEPINE ACETATE
     Indication: Seizure
     Dosage: 800 MG, QD
     Route: 048
     Dates: start: 2011
  2. FYCOMPA [Suspect]
     Active Substance: PERAMPANEL
     Indication: Seizure
     Dosage: 10 MG, QD
     Route: 048
     Dates: start: 2013
  3. ZONISAMIDE [Concomitant]
     Active Substance: ZONISAMIDE
     Indication: Seizure
     Dosage: 100 MG, QD
     Route: 048
     Dates: start: 2011

REACTIONS (5)
  - Seizure [Recovered/Resolved]
  - Upper limb fracture [Recovered/Resolved]
  - Road traffic accident [Recovered/Resolved]
  - Weight decreased [Recovered/Resolved]
  - Therapy interrupted [Unknown]

NARRATIVE: CASE EVENT DATE: 20240227
